FAERS Safety Report 15015208 (Version 1)
Quarter: 2018Q3

REPORT INFORMATION
  Report Type: Report from Study
  Country: US (occurrence: US)
  Receive Date: 20180615
  Receipt Date: 20180615
  Transmission Date: 20181010
  Serious: No
  Sender: FDA-Public Use
  Company Number: PHEH2018US023566

PATIENT
  Sex: Male

DRUGS (2)
  1. LEXACROL (ALUMINUM HYDROXIDE\DIMETHICONE\MAGNESIUM HYDROXIDE) [Suspect]
     Active Substance: ALUMINUM HYDROXIDE\DIMETHICONE\MAGNESIUM HYDROXIDE
     Indication: PRODUCT USED FOR UNKNOWN INDICATION
     Route: 065
  2. TASIGNA [Suspect]
     Active Substance: NILOTINIB
     Indication: PRODUCT USED FOR UNKNOWN INDICATION
     Dosage: 150 MG, QID (FOUR TIMES A DAY)
     Route: 048
     Dates: start: 20140223

REACTIONS (3)
  - Body height decreased [Unknown]
  - Product use issue [None]
  - Limb injury [Recovered/Resolved]
